FAERS Safety Report 5797422-3 (Version None)
Quarter: 2008Q3

REPORT INFORMATION
  Report Type: 
  Country: None (occurrence: None)
  Receive Date: 20080701
  Receipt Date: 20080627
  Transmission Date: 20090109
  Serious: Yes (Hospitalization)
  Sender: FDA-Public Use
  Company Number: JP-BOEHRINGER INGELHEIM GMBH, GERMANY-2007-DE-03300GD

PATIENT
  Age: 61 Year
  Sex: Female

DRUGS (3)
  1. AMANTADINE HCL [Suspect]
     Indication: PARKINSON'S DISEASE
  2. ZONISAMIDE [Suspect]
     Indication: PARKINSON'S DISEASE
  3. CABERGOLINE [Suspect]
     Indication: PARKINSON'S DISEASE
     Dates: start: 20020101

REACTIONS (2)
  - HALLUCINATION, AUDITORY [None]
  - HALLUCINATION, OLFACTORY [None]
